FAERS Safety Report 14144603 (Version 1)
Quarter: 2017Q4

REPORT INFORMATION
  Report Type: Report from Study
  Country: US (occurrence: US)
  Receive Date: 20171031
  Receipt Date: 20171031
  Transmission Date: 20180321
  Serious: Yes (Death)
  Sender: FDA-Public Use
  Company Number: US-VIFOR (INTERNATIONAL) INC.-VIT-2017-04489

PATIENT
  Sex: Female
  Weight: 68.1 kg

DRUGS (2)
  1. VELTASSA [Suspect]
     Active Substance: PATIROMER
     Route: 048
  2. VELTASSA [Suspect]
     Active Substance: PATIROMER
     Indication: HYPERKALAEMIA
     Route: 048
     Dates: end: 201706

REACTIONS (3)
  - Death [Fatal]
  - Abnormal faeces [Recovered/Resolved]
  - Drug ineffective [Unknown]

NARRATIVE: CASE EVENT DATE: 2017
